FAERS Safety Report 13355588 (Version 3)
Quarter: 2017Q2

REPORT INFORMATION
  Report Type: Spontaneous
  Country: FR (occurrence: FR)
  Receive Date: 20170321
  Receipt Date: 20170417
  Transmission Date: 20170830
  Serious: Yes (Hospitalization)
  Sender: FDA-Public Use
  Company Number: FR-ELI_LILLY_AND_COMPANY-FR201703005495

PATIENT
  Age: 52 Year
  Sex: Male

DRUGS (10)
  1. ZYPREXA [Suspect]
     Active Substance: OLANZAPINE
     Indication: SCHIZOPHRENIA
     Dosage: 30 MG, QD
     Route: 065
     Dates: start: 201701
  2. SULFARLEM [Concomitant]
     Active Substance: ANETHOLTRITHION
     Dosage: 1 DF, TID
  3. ZYPADHERA [Suspect]
     Active Substance: OLANZAPINE PAMOATE
     Indication: SCHIZOPHRENIA
     Dosage: 300 MG, 2/M
     Route: 030
     Dates: start: 20170113
  4. ZYPADHERA [Suspect]
     Active Substance: OLANZAPINE PAMOATE
     Indication: PSYCHOTIC DISORDER
  5. ZYPREXA [Suspect]
     Active Substance: OLANZAPINE
     Dosage: 40 MG, QD
     Route: 048
     Dates: start: 201701
  6. TERCIAN                            /00759301/ [Concomitant]
     Active Substance: CYAMEMAZINE
     Dosage: 3 DF, UNK
     Dates: start: 201701
  7. EUPANTOL [Concomitant]
     Active Substance: PANTOPRAZOLE SODIUM
     Dosage: 1 DF, EACH MORNING
     Dates: start: 201701
  8. VOGALENE [Concomitant]
     Active Substance: METOPIMAZINE
  9. LEPTICUR [Concomitant]
     Active Substance: TROPATEPINE HYDROCHLORIDE
     Dosage: 10 MG, QD
     Dates: start: 201701
  10. ZYPREXA [Suspect]
     Active Substance: OLANZAPINE
     Dosage: 20 MG, EACH EVENING
     Route: 048
     Dates: start: 20170113, end: 20170310

REACTIONS (16)
  - Heart rate increased [Recovered/Resolved]
  - Altered state of consciousness [Recovered/Resolved]
  - Muscular weakness [Recovered/Resolved]
  - Cerebellar ataxia [Recovered/Resolved]
  - Aggression [Recovered/Resolved]
  - Drug level increased [Unknown]
  - Wrong technique in product usage process [Unknown]
  - Incoherent [Recovered/Resolved]
  - Unresponsive to stimuli [Recovered/Resolved]
  - Hypertension [Recovered/Resolved]
  - Somnolence [Recovered/Resolved]
  - Drug resistance [Unknown]
  - Dysarthria [Recovered/Resolved]
  - Balance disorder [Recovered/Resolved]
  - Prescribed overdose [Unknown]
  - Oxygen saturation decreased [Recovered/Resolved]

NARRATIVE: CASE EVENT DATE: 201701
